FAERS Safety Report 9482409 (Version 1)
Quarter: 2013Q3

REPORT INFORMATION
  Report Type: Spontaneous
  Country: US (occurrence: US)
  Receive Date: 20130828
  Receipt Date: 20130828
  Transmission Date: 20140515
  Serious: Yes (Hospitalization)
  Sender: FDA-Public Use
  Company Number: US-PFIZER INC-2013247459

PATIENT
  Age: 70 Year
  Sex: Female
  Weight: 74.83 kg

DRUGS (5)
  1. XANAX [Suspect]
     Indication: ANXIETY
     Dosage: 2 MG, AS NEEDED
     Route: 048
     Dates: start: 20130815, end: 201308
  2. ZANTAC [Concomitant]
     Dosage: UNK
  3. DILTIAZEM [Concomitant]
     Dosage: UNK
  4. NEURONTIN [Concomitant]
     Dosage: UNK
  5. EFFEXOR [Concomitant]
     Dosage: UNK

REACTIONS (2)
  - Loss of consciousness [Unknown]
  - Hypokinesia [Unknown]
